FAERS Safety Report 10661473 (Version 12)
Quarter: 2015Q2

REPORT INFORMATION
  Report Type: Report from Study
  Country: CA (occurrence: CA)
  Receive Date: 20141218
  Receipt Date: 20150624
  Transmission Date: 20150821
  Serious: Yes (Other)
  Sender: FDA-Public Use
  Company Number: CA-ROCHE-1508601

PATIENT
  Age: 49 Year
  Sex: Female
  Weight: 75 kg

DRUGS (6)
  1. ELAVIL [Concomitant]
     Active Substance: AMITRIPTYLINE HYDROCHLORIDE
  2. VENLAFAXINE [Concomitant]
     Active Substance: VENLAFAXINE HYDROCHLORIDE
  3. ACTEMRA [Suspect]
     Active Substance: TOCILIZUMAB
     Indication: RHEUMATOID ARTHRITIS
     Route: 042
     Dates: start: 20150122
  4. LORAZEPAM. [Concomitant]
     Active Substance: LORAZEPAM
  5. RITUXAN [Suspect]
     Active Substance: RITUXIMAB
     Indication: RHEUMATOID ARTHRITIS
     Route: 042
     Dates: start: 20140722, end: 20140807
  6. AMLODIPINE [Suspect]
     Active Substance: AMLODIPINE BESYLATE
     Indication: PRODUCT USED FOR UNKNOWN INDICATION
     Route: 065

REACTIONS (21)
  - Pneumonia [Unknown]
  - Oedema peripheral [Unknown]
  - Abdominal pain upper [Unknown]
  - C-reactive protein increased [Recovering/Resolving]
  - Rheumatoid arthritis [Unknown]
  - Nasopharyngitis [Unknown]
  - Tinnitus [Unknown]
  - Arthralgia [Not Recovered/Not Resolved]
  - Weight increased [Unknown]
  - Dizziness [Unknown]
  - Heart rate increased [Unknown]
  - Cerebrovascular accident [Unknown]
  - Hypoaesthesia [Not Recovered/Not Resolved]
  - Asthma [Unknown]
  - Drug ineffective [Unknown]
  - Joint swelling [Not Recovered/Not Resolved]
  - Nasopharyngitis [Unknown]
  - Acne [Unknown]
  - Infusion related reaction [Unknown]
  - Red blood cell sedimentation rate increased [Recovering/Resolving]
  - Oxygen saturation decreased [Unknown]

NARRATIVE: CASE EVENT DATE: 2015
